FAERS Safety Report 12174340 (Version 1)
Quarter: 2016Q1

REPORT INFORMATION
  Report Type: Report from Study
  Country: US (occurrence: US)
  Receive Date: 20160312
  Receipt Date: 20160312
  Transmission Date: 20160526
  Serious: Yes (Other)
  Sender: FDA-Public Use
  Company Number: US-ACCORD-038685

PATIENT
  Age: 48 Year

DRUGS (4)
  1. INOTUZUMAB/INOTUZUMAB OZOGAMICIN [Concomitant]
     Indication: B-CELL TYPE ACUTE LEUKAEMIA
     Dates: start: 20130329, end: 20130714
  2. CYTARABINE/CYTARABINE HYDROCHLORIDE/CYTARABINE OCFOSFATE [Concomitant]
     Indication: B-CELL TYPE ACUTE LEUKAEMIA
     Dosage: ALTERNATING THERAPY ON DAYS 2 AND 7 OF EACH HYPERCVAD COURSE FOR A TOTAL OF 8 OR 12 DOSES
     Route: 039
     Dates: start: 20130329, end: 20130714
  3. ARA-C (DEPOCYT) [Concomitant]
     Indication: B-CELL TYPE ACUTE LEUKAEMIA
     Route: 039
     Dates: start: 20130319
  4. METHOTREXATE [Suspect]
     Active Substance: METHOTREXATE
     Indication: B-CELL TYPE ACUTE LEUKAEMIA
     Dosage: ALSO RECEIVED ON 04-JAN-2013 (CUMULATIVE DOSE: 12 MG)?HYPER-CVAD REGIMEN
     Route: 039
     Dates: start: 20130329, end: 20130714

REACTIONS (1)
  - Myelopathy [Not Recovered/Not Resolved]

NARRATIVE: CASE EVENT DATE: 20130408
